FAERS Safety Report 6295452-9 (Version None)
Quarter: 2009Q3

REPORT INFORMATION
  Report Type: 
  Country: None (occurrence: None)
  Receive Date: 20090730
  Receipt Date: 20090723
  Transmission Date: 20100115
  Serious: Yes (Congenital Anomaly)
  Sender: FDA-Public Use
  Company Number: 2009-201160-NL

PATIENT

DRUGS (3)
  1. MIRTAZAPINE [Suspect]
     Dosage: INTRA UTERINE
     Route: 015
  2. OXAZEPAM [Suspect]
     Dosage: INTRA UTERINE
     Route: 015
  3. ZOLPIDEM TARTRATE [Suspect]
     Dosage: INTRA UTERINE
     Route: 015

REACTIONS (2)
  - DRUG EXPOSURE DURING PREGNANCY [None]
  - PSYCHOMOTOR SKILLS IMPAIRED [None]
